FAERS Safety Report 19224426 (Version 1)
Quarter: 2021Q2

REPORT INFORMATION
  Report Type: Spontaneous
  Country: US (occurrence: US)
  Receive Date: 20210505
  Receipt Date: 20210505
  Transmission Date: 20210717
  Serious: No
  Sender: FDA-Public Use
  Company Number: US-ROCHE-2680494

PATIENT
  Sex: Female

DRUGS (17)
  1. ESBRIET [Suspect]
     Active Substance: PIRFENIDONE
     Indication: IDIOPATHIC PULMONARY FIBROSIS
     Dosage: TAKE 1 TABLET FORE 1 WEEK WITH MEAL.
     Route: 048
  2. CELEBREX [Concomitant]
     Active Substance: CELECOXIB
  3. METOPROLOL TARTRATE. [Concomitant]
     Active Substance: METOPROLOL TARTRATE
  4. CENTRUM SILVER [Concomitant]
     Active Substance: MINERALS\VITAMINS
  5. COENZYME Q10 [Concomitant]
     Active Substance: DIETARY SUPPLEMENT\UBIDECARENONE
  6. ALENDRONATE SODIUM. [Concomitant]
     Active Substance: ALENDRONATE SODIUM
  7. FLORASTOR [Concomitant]
     Active Substance: SACCHAROMYCES CEREVISIAE
  8. OXYCODONE HYDROCHLORIDE. [Concomitant]
     Active Substance: OXYCODONE HYDROCHLORIDE
  9. PANTOPRAZOLE SODIUM. [Concomitant]
     Active Substance: PANTOPRAZOLE SODIUM
  10. AMLODIPINE BESYLATE. [Concomitant]
     Active Substance: AMLODIPINE BESYLATE
  11. BIOTIN [Concomitant]
     Active Substance: BIOTIN
  12. FLUTICASONE PROPIONATE. [Concomitant]
     Active Substance: FLUTICASONE PROPIONATE
  13. GABAPENTIN. [Concomitant]
     Active Substance: GABAPENTIN
  14. ESBRIET [Suspect]
     Active Substance: PIRFENIDONE
     Dosage: TAKE 3 TABLET FOR 1 WEEK WITH MEAL.
     Route: 048
  15. ASPIRIN 81 [Concomitant]
     Active Substance: ASPIRIN
  16. LEVOTHYROXINE SODIUM. [Concomitant]
     Active Substance: LEVOTHYROXINE SODIUM
  17. ESBRIET [Suspect]
     Active Substance: PIRFENIDONE
     Dosage: TAKE 2 TABLET FOR 1 WEEK WITH MEAL
     Route: 048

REACTIONS (1)
  - Dizziness [Recovered/Resolved]
